FAERS Safety Report 4707704-1 (Version None)
Quarter: 2005Q2

REPORT INFORMATION
  Report Type: 
  Country: None (occurrence: None)
  Receive Date: 20050629
  Receipt Date: 20050303
  Transmission Date: 20051028
  Serious: No
  Sender: FDA-Public Use
  Company Number: 05P-163-0292830-00

PATIENT
  Age: 53 Year
  Sex: Female
  Weight: 86.1834 kg

DRUGS (8)
  1. HUMIRA [Suspect]
     Indication: RHEUMATOID ARTHRITIS
     Dosage: 40 MG, 1 IN 2 WK, SUBCUTANEOUS
     Route: 058
     Dates: start: 20050217
  2. HYDROXYCHLOROQUINE PHOSPHATE [Concomitant]
  3. METHTREXATE [Concomitant]
  4. LOSARTAN POTASSIUM [Concomitant]
  5. CLOPIDOGREL BISULFATE [Concomitant]
  6. ATORVASTATIN CALCIUM [Concomitant]
  7. ASPIRIN [Concomitant]
  8. FOLIC ACID [Concomitant]

REACTIONS (4)
  - INJECTION SITE ERYTHEMA [None]
  - INJECTION SITE PRURITUS [None]
  - INJECTION SITE RASH [None]
  - INJECTION SITE WARMTH [None]
